FAERS Safety Report 5421211-2 (Version None)
Quarter: 2007Q3

REPORT INFORMATION
  Report Type: 
  Country: None (occurrence: None)
  Receive Date: 20070821
  Receipt Date: 20070815
  Transmission Date: 20080115
  Serious: Yes (Other)
  Sender: FDA-Public Use
  Company Number: US-ASTRAZENECA-2007UW19703

PATIENT
  Age: 80 Year
  Sex: Female

DRUGS (2)
  1. ARIMIDEX [Suspect]
     Indication: BREAST CANCER
     Route: 048
     Dates: start: 20040801
  2. BLOOD PRESSURE MEDICATION [Concomitant]

REACTIONS (5)
  - ARTHRALGIA [None]
  - CARDIOMEGALY [None]
  - LYMPHOEDEMA [None]
  - MUSCULOSKELETAL CHEST PAIN [None]
  - PROCEDURAL PAIN [None]
